FAERS Safety Report 6230180-7 (Version None)
Quarter: 2009Q2

REPORT INFORMATION
  Report Type: 
  Country: None (occurrence: None)
  Receive Date: 20090615
  Receipt Date: 20090609
  Transmission Date: 20091009
  Serious: Yes (Other)
  Sender: FDA-Public Use
  Company Number: US-ASTRAZENECA-2009UW14817

PATIENT
  Age: 75 Year
  Sex: Female

DRUGS (2)
  1. CRESTOR [Suspect]
     Indication: BLOOD CHOLESTEROL
     Route: 048
  2. PRINIDILIDAX [Concomitant]
     Indication: BLOOD PRESSURE

REACTIONS (6)
  - ARTHRALGIA [None]
  - EYE DISORDER [None]
  - MYALGIA [None]
  - RENAL DISORDER [None]
  - URINE COLOUR ABNORMAL [None]
  - URINE OUTPUT DECREASED [None]
